FAERS Safety Report 16188316 (Version 2)
Quarter: 2019Q2

REPORT INFORMATION
  Report Type: Spontaneous
  Country: FR (occurrence: FR)
  Receive Date: 20190412
  Receipt Date: 20190520
  Transmission Date: 20190711
  Serious: Yes (Death, Hospitalization)
  Sender: FDA-Public Use
  Company Number: FR-SA-2019SA099563

PATIENT
  Age: 81 Year
  Sex: Male
  Weight: 83.5 kg

DRUGS (9)
  1. SILODOSIN. [Suspect]
     Active Substance: SILODOSIN
     Indication: PROSTATOMEGALY
     Dosage: 8 MG, UNK
     Route: 048
  2. APROVEL [Suspect]
     Active Substance: IRBESARTAN
     Indication: HYPERTENSION
     Dosage: 150 MG, UNK
     Route: 048
  3. FUROSEMIDE. [Suspect]
     Active Substance: FUROSEMIDE
     Indication: HYPERTENSION
     Dosage: 40 MG, UNK
     Route: 048
  4. ROSUVASTATIN. [Suspect]
     Active Substance: ROSUVASTATIN
     Indication: HYPERCHOLESTEROLAEMIA
     Dosage: 5 MG, UNK
     Route: 048
  5. ESOMEPRAZOLE. [Suspect]
     Active Substance: ESOMEPRAZOLE MAGNESIUM
     Indication: GASTROOESOPHAGEAL REFLUX DISEASE
     Dosage: 20 MG, UNK
     Route: 048
  6. ROVAMYCIN [Suspect]
     Active Substance: SPIRAMYCIN
     Indication: BRONCHITIS
     Dosage: 6 MCI, UNK
     Route: 048
     Dates: start: 20190222, end: 20190301
  7. AMOXICILLIN. [Suspect]
     Active Substance: AMOXICILLIN
     Indication: BRONCHITIS
     Dosage: UNK, UNK
     Route: 048
     Dates: start: 20190214, end: 20190222
  8. BISOPROLOL FUMARATE. [Suspect]
     Active Substance: BISOPROLOL FUMARATE
     Indication: HYPERTENSION
     Dosage: 7.5 MG, UNK
     Route: 048
  9. PRADAXA [Suspect]
     Active Substance: DABIGATRAN ETEXILATE MESYLATE
     Indication: ATRIAL FIBRILLATION
     Dosage: 300 MG, QD
     Route: 048

REACTIONS (5)
  - Eosinophilia [Fatal]
  - Rash maculo-papular [Fatal]
  - Rash vesicular [Fatal]
  - Rhabdomyolysis [Fatal]
  - Pyrexia [Fatal]

NARRATIVE: CASE EVENT DATE: 20190304
